FAERS Safety Report 6569142-9 (Version None)
Quarter: 2010Q1

REPORT INFORMATION
  Report Type: 
  Country: None (occurrence: None)
  Receive Date: 20100203
  Receipt Date: 20100128
  Transmission Date: 20100710
  Serious: Yes (Hospitalization)
  Sender: FDA-Public Use
  Company Number: JP-ABBOTT-10P-087-0623532-00

PATIENT
  Sex: Female

DRUGS (4)
  1. LEUPLIN FOR INJECTION 1.88 MG [Suspect]
     Indication: MENORRHAGIA
     Route: 058
     Dates: start: 20100127
  2. LEUPLIN FOR INJECTION 1.88 MG [Suspect]
     Indication: UTERINE LEIOMYOMA
  3. FESIN [Concomitant]
     Indication: DRUG USE FOR UNKNOWN INDICATION
     Route: 042
  4. IRON PREPARATIONS [Concomitant]
     Indication: DRUG USE FOR UNKNOWN INDICATION
     Route: 048

REACTIONS (3)
  - BLOOD PRESSURE DECREASED [None]
  - COUGH [None]
  - RASH [None]
